FAERS Safety Report 19422091 (Version 2)
Quarter: 2021Q3

REPORT INFORMATION
  Report Type: Other
  Country: GB (occurrence: GB)
  Receive Date: 20210616
  Receipt Date: 20210823
  Transmission Date: 20211014
  Serious: Yes (Other)
  Sender: FDA-Public Use
  Company Number: GB-ROCHE-2842878

PATIENT
  Age: 59 Year
  Sex: Female

DRUGS (88)
  1. TRASTUZUMAB. [Suspect]
     Active Substance: TRASTUZUMAB
     Indication: BREAST CANCER
     Dosage: LOADING DOSE 3/WEEK (CV) , UNIT DOSE : 462 MG
     Route: 042
     Dates: start: 20150506, end: 20150506
  2. TRASTUZUMAB. [Suspect]
     Active Substance: TRASTUZUMAB
     Route: 042
  3. TRASTUZUMAB EMTANSINE [Suspect]
     Active Substance: ADO-TRASTUZUMAB EMTANSINE
     Dosage: EVERY 3 WEEKS , UNIT DOSE :  224 MG?MOST RECENT DOSE OF TRASTUZUMAB EMTANSINE:30/AUG/2017
     Route: 042
     Dates: start: 20170620
  4. DOCETAXEL. [Suspect]
     Active Substance: DOCETAXEL
     Dosage: 100 MILLIGRAM DAILY;
     Route: 048
     Dates: start: 20160901, end: 20160930
  5. EXEMESTANE. [Suspect]
     Active Substance: EXEMESTANE
     Dosage: 25 MILLIGRAM DAILY;
     Route: 048
  6. CODEINE [Concomitant]
     Active Substance: CODEINE
     Indication: DIARRHOEA
     Dosage: UNK, UNKNOWN
     Route: 048
     Dates: start: 20150603, end: 20150715
  7. LANSOPRAZOLE. [Concomitant]
     Active Substance: LANSOPRAZOLE
     Indication: PROPHYLAXIS
     Dosage: UNK, UNKNOWN
     Route: 048
     Dates: start: 20150504, end: 20171027
  8. LOSARTAN. [Concomitant]
     Active Substance: LOSARTAN
     Dosage: 50 MG, UNK
     Route: 048
     Dates: start: 20160602, end: 20171027
  9. METOCLOPRAMIDE. [Concomitant]
     Active Substance: METOCLOPRAMIDE
     Dosage: UNK, BID (2/DAY)
     Route: 048
     Dates: start: 20170301, end: 2017
  10. METOCLOPRAMIDE. [Concomitant]
     Active Substance: METOCLOPRAMIDE
     Dosage: 2 DOSAGE FORMS DAILY;
     Route: 048
     Dates: start: 20170815
  11. DEXAMETHASONE. [Concomitant]
     Active Substance: DEXAMETHASONE
     Dosage: 1 DF DAILY
     Route: 048
     Dates: start: 201607, end: 20160921
  12. DEXAMETHASONE. [Concomitant]
     Active Substance: DEXAMETHASONE
     Dosage: 1 DF DAILY
     Route: 048
     Dates: start: 201612, end: 201612
  13. CORSODYL [Concomitant]
     Active Substance: CHLORHEXIDINE GLUCONATE
  14. PERTUZUMAB. [Suspect]
     Active Substance: PERTUZUMAB
     Dosage: LOADING DOSE , UNIT DOSE :  2520 MG
     Route: 042
     Dates: start: 20150507, end: 20150507
  15. ACCRETE D3 [Concomitant]
     Active Substance: CALCIUM CARBONATE\CHOLECALCIFEROL
     Indication: PRODUCT USED FOR UNKNOWN INDICATION
     Dosage: UNK, UNKNOWN
     Route: 048
     Dates: end: 20171027
  16. CODEINE [Concomitant]
     Active Substance: CODEINE
     Indication: PRODUCT USED FOR UNKNOWN INDICATION
     Dosage: UNK, UNKNOWN
     Route: 048
     Dates: end: 2015
  17. CYCLIZINE [Concomitant]
     Active Substance: CYCLIZINE
     Indication: PROPHYLAXIS
     Dosage: 150 MILLIGRAM DAILY;
     Route: 048
     Dates: start: 20150603, end: 20150715
  18. LEVETIRACETAM. [Concomitant]
     Active Substance: LEVETIRACETAM
     Indication: EPILEPSY
     Route: 048
     Dates: start: 20160727, end: 20160810
  19. METOCLOPRAMIDE. [Concomitant]
     Active Substance: METOCLOPRAMIDE
     Indication: PRODUCT USED FOR UNKNOWN INDICATION
     Dosage: SUBSEQUENT DOSE RECEIVED ON 18/NOV/2016
     Route: 048
     Dates: start: 20150506, end: 2016
  20. METOCLOPRAMIDE. [Concomitant]
     Active Substance: METOCLOPRAMIDE
     Route: 048
  21. ONDANSETRON [Concomitant]
     Active Substance: ONDANSETRON
     Dosage: UNK, UNKNOWN
     Route: 048
     Dates: start: 20161111, end: 2016
  22. DEXAMETHASONE. [Concomitant]
     Active Substance: DEXAMETHASONE
     Dosage: 1 DF DAILY 2 MG
     Route: 048
     Dates: start: 201612, end: 20170510
  23. PERTUZUMAB. [Suspect]
     Active Substance: PERTUZUMAB
     Dosage: EVERY 3 WEEKS , UNIT DOSE : 420 MG?MOST RECENT DOSE OF PERTUZUMAB: 30/JUN/2016
     Route: 042
     Dates: start: 20150527
  24. ANASTROZOLE. [Suspect]
     Active Substance: ANASTROZOLE
     Indication: BREAST NEOPLASM
     Dosage: 1 MILLIGRAM DAILY;?MOST RECENT DOSE OF ANASTROZOLE ON: 27/OCT/2017
     Route: 048
     Dates: start: 20151021
  25. LACTULOSE. [Concomitant]
     Active Substance: LACTULOSE
     Indication: CONSTIPATION
     Route: 048
     Dates: start: 201603, end: 20171021
  26. RAMIPRIL. [Concomitant]
     Active Substance: RAMIPRIL
     Indication: PALPITATIONS
     Dosage: 5 MILLIGRAM DAILY; 5MG
     Route: 048
     Dates: start: 20160308, end: 20161005
  27. DEXAMETHASONE. [Concomitant]
     Active Substance: DEXAMETHASONE
     Dosage: 1 DF DAILY, UNK
     Route: 048
     Dates: start: 20150506, end: 20150717
  28. AMITRIPTYLINE [Concomitant]
     Active Substance: AMITRIPTYLINE
  29. CODEINE PHOSPHATE [Concomitant]
     Active Substance: CODEINE PHOSPHATE
  30. FLUCLOXACILLIN [Concomitant]
     Active Substance: FLUCLOXACILLIN
  31. GELCLAIR (UNITED KINGDOM) [Concomitant]
  32. CAPECITABINE. [Suspect]
     Active Substance: CAPECITABINE
     Indication: BREAST CANCER
     Dosage: 3300 MG, UNK?MOST RECENT DOSE OF CAPECITABINE: 14/SEP/2016
     Route: 048
     Dates: start: 20160901
  33. EXEMESTANE. [Suspect]
     Active Substance: EXEMESTANE
     Dosage: 25 MILLIGRAM DAILY;
     Route: 048
     Dates: start: 20151021
  34. VINORELBINE [Suspect]
     Active Substance: VINORELBINE TARTRATE
     Dosage: 100 MG, UNK
     Route: 048
     Dates: start: 20161028, end: 20161028
  35. KEPPRA [Concomitant]
     Active Substance: LEVETIRACETAM
     Indication: MUSCLE TWITCHING
     Dosage: UNK UNK, BID (2/DAY)
     Route: 048
     Dates: start: 20160727, end: 20160810
  36. KEPPRA [Concomitant]
     Active Substance: LEVETIRACETAM
     Dosage: UNK UNK, BID (2/DAY)
     Route: 048
     Dates: start: 20160811, end: 20161027
  37. METOCLOPRAMIDE. [Concomitant]
     Active Substance: METOCLOPRAMIDE
     Dosage: 2 DOSAGE FORMS DAILY;
     Route: 048
     Dates: start: 20170301, end: 2017
  38. QUININE SULFATE. [Concomitant]
     Active Substance: QUININE SULFATE
     Indication: MUSCLE SPASMS
     Dosage: 200 MG, UNK
     Route: 048
     Dates: start: 20161123, end: 20171027
  39. SENNA [Concomitant]
     Active Substance: SENNA LEAF\SENNOSIDES\SENNOSIDES A AND B
     Indication: CONSTIPATION
     Dosage: UNK, UNKNOWN
     Route: 048
     Dates: start: 20161221, end: 20170327
  40. VENTOLIN [Concomitant]
     Active Substance: ALBUTEROL SULFATE
     Indication: WHEEZING
     Dosage: UNK, UNKNOWN
     Route: 065
     Dates: start: 20170621, end: 2017
  41. DEXAMETHASONE. [Concomitant]
     Active Substance: DEXAMETHASONE
     Dosage: 1 DF DAILY
     Route: 048
     Dates: start: 20170216, end: 20170830
  42. DEXAMETHASONE. [Concomitant]
     Active Substance: DEXAMETHASONE
     Dosage: UNK, UNKNOWN
     Route: 048
     Dates: start: 20160713, end: 201607
  43. HYDROCORTISONE. [Concomitant]
     Active Substance: HYDROCORTISONE
  44. PIRITON [Concomitant]
     Active Substance: CHLORPHENIRAMINE MALEATE
  45. PERTUZUMAB. [Suspect]
     Active Substance: PERTUZUMAB
     Dosage: 357 MILLIGRAM, Q3W
     Route: 042
     Dates: start: 20150527, end: 20160630
  46. TRASTUZUMAB EMTANSINE [Suspect]
     Active Substance: ADO-TRASTUZUMAB EMTANSINE
     Dosage: 51 MILLIGRAM DAILY; 357 MILLIGRAM, WEEKLY
     Route: 065
     Dates: start: 20150527, end: 20160630
  47. DOCETAXEL. [Suspect]
     Active Substance: DOCETAXEL
     Indication: BREAST CANCER
     Dosage: UNIT DOSE : 130 MG?MOST RECENT DOSE OF DOCETAXEL: 03/SEP/2015
     Route: 042
     Dates: start: 20150507
  48. BISOPROLOL [Concomitant]
     Active Substance: BISOPROLOL
     Indication: PALPITATIONS
     Route: 048
     Dates: start: 20160602, end: 20171027
  49. CALAMINE [Concomitant]
     Active Substance: CALAMINE\FERRIC OXIDE RED\ZINC OXIDE
     Indication: PRODUCT USED FOR UNKNOWN INDICATION
     Dosage: UNK UNK, PRN 1 APPLICATION, AS NEEDED
     Route: 061
     Dates: start: 20150915
  50. FLUCONAZOLE. [Concomitant]
     Active Substance: FLUCONAZOLE
     Indication: PRODUCT USED FOR UNKNOWN INDICATION
     Dosage: UNK, UNKNOWN
     Route: 048
     Dates: start: 20171004, end: 20171004
  51. LACTULOSE. [Concomitant]
     Active Substance: LACTULOSE
     Route: 048
     Dates: start: 20161221, end: 20171021
  52. NITROFURANTOIN. [Concomitant]
     Active Substance: NITROFURANTOIN
     Indication: PRODUCT USED FOR UNKNOWN INDICATION
     Dosage: UNK, UNKNOWN
     Route: 065
     Dates: start: 20170621, end: 20170623
  53. SPIRONOLACTONE. [Concomitant]
     Active Substance: SPIRONOLACTONE
     Indication: PALPITATIONS
     Route: 048
     Dates: start: 20160602, end: 20171027
  54. DOCETAXEL. [Suspect]
     Active Substance: DOCETAXEL
     Dosage: 100 MILLIGRAM DAILY
     Route: 048
     Dates: start: 20161111
  55. DOCETAXEL. [Suspect]
     Active Substance: DOCETAXEL
     Dosage: 100 MILLIGRAM DAILY;
     Route: 048
     Dates: start: 20160128, end: 20160128
  56. EXEMESTANE. [Suspect]
     Active Substance: EXEMESTANE
     Indication: BREAST CANCER
     Dosage: 25 MG, UNK
     Route: 048
  57. CASSIA SENNA [Concomitant]
     Active Substance: HERBALS\SENNOSIDES
     Indication: CONSTIPATION
     Dosage: UNK, UNKNOWN
     Route: 048
     Dates: start: 20161221, end: 20170327
  58. CALCIUM GLUCONATE. [Concomitant]
     Active Substance: CALCIUM GLUCONATE
     Indication: PRODUCT USED FOR UNKNOWN INDICATION
     Dosage: UNK, UNKNOWN
     Route: 065
     Dates: end: 20170201
  59. LEVETIRACETAM. [Concomitant]
     Active Substance: LEVETIRACETAM
     Route: 048
     Dates: start: 20160811, end: 20161027
  60. METOCLOPRAMIDE. [Concomitant]
     Active Substance: METOCLOPRAMIDE
     Dosage: UNK, UNKNOWN
     Route: 042
     Dates: start: 20150506, end: 20150903
  61. PARACETAMOL [Concomitant]
     Active Substance: ACETAMINOPHEN
     Indication: HEADACHE
     Dosage: UNK, UNKNOWN
     Route: 048
     Dates: start: 20160629, end: 20171027
  62. PEGFILGRASTIM [Concomitant]
     Active Substance: PEGFILGRASTIM
     Indication: PRODUCT USED FOR UNKNOWN INDICATION
     Dosage: UNK, UNKNOWN
     Route: 058
     Dates: start: 20150506, end: 20150903
  63. DEXAMETHASONE. [Concomitant]
     Active Substance: DEXAMETHASONE
     Indication: PREMEDICATION
     Dosage: 2 MG, UNK
     Route: 065
     Dates: start: 20161014
  64. DEXAMETHASONE. [Concomitant]
     Active Substance: DEXAMETHASONE
     Dosage: 1 DF DAILY; 8MG
     Route: 048
     Dates: start: 20161130, end: 20161201
  65. DEXAMETHASONE. [Concomitant]
     Active Substance: DEXAMETHASONE
     Dosage: UNK, UNIT DOSE: 2 MG
     Route: 048
     Dates: start: 20161004, end: 20161123
  66. DEXAMETHASONE. [Concomitant]
     Active Substance: DEXAMETHASONE
     Dosage: 2 MG, UNK
     Route: 048
     Dates: start: 20160713, end: 20161004
  67. VINORELBINE [Suspect]
     Active Substance: VINORELBINE TARTRATE
     Indication: BREAST CANCER
     Dosage: 100 UNK, UNK
     Route: 048
     Dates: start: 20160901, end: 20160930
  68. VINORELBINE [Suspect]
     Active Substance: VINORELBINE TARTRATE
     Dosage: 100 MILLIGRAM DAILY;
     Route: 048
     Dates: start: 20161111
  69. APREPITANT. [Concomitant]
     Active Substance: APREPITANT
     Indication: PROPHYLAXIS
     Dosage: UNK UNK, UNKNOWN
     Route: 065
     Dates: start: 20150527, end: 20150905
  70. COCODAMOL [Concomitant]
     Active Substance: ACETAMINOPHEN\CODEINE PHOSPHATE
     Indication: HEADACHE
     Dosage: UNK, UNKNOWN
     Route: 048
     Dates: start: 20160929, end: 20171027
  71. LEVETIRACETAM. [Concomitant]
     Active Substance: LEVETIRACETAM
     Dosage: 250 MG, UNK
     Route: 048
     Dates: start: 20160727, end: 20171027
  72. LOSARTAN. [Concomitant]
     Active Substance: LOSARTAN
     Indication: PALPITATIONS
     Dosage: 50 MG
     Route: 048
  73. METOCLOPRAMIDE. [Concomitant]
     Active Substance: METOCLOPRAMIDE
     Dosage: UNK, UNKNOWN
     Route: 048
     Dates: start: 20170815, end: 2017
  74. TRIMETHOPRIM. [Concomitant]
     Active Substance: TRIMETHOPRIM
     Indication: URINARY TRACT INFECTION
     Dosage: UNK
     Route: 048
     Dates: start: 20170209, end: 20170216
  75. DEXAMETHASONE. [Concomitant]
     Active Substance: DEXAMETHASONE
     Dosage: UNK, UNIT DOSE: 8 MG
     Route: 048
     Dates: start: 20150504, end: 20150904
  76. DEXAMETHASONE. [Concomitant]
     Active Substance: DEXAMETHASONE
     Dosage: 1 DF DAILY
     Route: 048
     Dates: start: 20161123, end: 20161130
  77. TRASTUZUMAB. [Suspect]
     Active Substance: TRASTUZUMAB
     Dosage: 357 MG, EVERY 3 WEEKS, 1071MG?MOST RECENT DOSE OF TRASTUZUMAB: 30/JUN/2016
     Route: 042
     Dates: start: 20150527
  78. PERTUZUMAB. [Suspect]
     Active Substance: PERTUZUMAB
     Indication: BREAST CANCER
     Dosage: 40 MILLIGRAM DAILY; 840 MG, 2520 MILLIGRAM, WEEKLY, LOADING DOSE
     Route: 042
     Dates: start: 20150507, end: 20150507
  79. TRASTUZUMAB EMTANSINE [Suspect]
     Active Substance: ADO-TRASTUZUMAB EMTANSINE
     Indication: BREAST CANCER
     Dosage: 462 MG, WEEKLY
     Route: 042
     Dates: start: 20150506, end: 20150506
  80. EXEMESTANE. [Suspect]
     Active Substance: EXEMESTANE
     Dosage: 1 DOSAGE FORMS DAILY;
     Route: 048
     Dates: start: 201607, end: 20160921
  81. EXEMESTANE. [Suspect]
     Active Substance: EXEMESTANE
     Dosage: 25 MILLIGRAM DAILY;
     Route: 048
  82. AMOXICILLIN. [Concomitant]
     Active Substance: AMOXICILLIN
     Indication: OROPHARYNGEAL PAIN
     Dosage: 9 DOSAGE FORMS DAILY; UNIT DOSE :  3 DF
     Route: 048
     Dates: start: 20151104, end: 20151111
  83. BECLOMETASONE [Concomitant]
     Active Substance: BECLOMETHASONE DIPROPIONATE
     Indication: WHEEZING
     Dosage: UNK, UNKNOWN
     Route: 050
     Dates: end: 20160108
  84. IBUPROFEN. [Concomitant]
     Active Substance: IBUPROFEN
     Indication: HEADACHE
     Dosage: 1 TABLET , UNIT DOSE : 1 DF
     Route: 048
     Dates: start: 20170201
  85. LACTULOSE. [Concomitant]
     Active Substance: LACTULOSE
     Indication: NEURALGIA
     Route: 048
     Dates: start: 20170201, end: 201703
  86. ONDANSETRON [Concomitant]
     Active Substance: ONDANSETRON
     Indication: PRODUCT USED FOR UNKNOWN INDICATION
     Dosage: UNK
     Route: 048
     Dates: start: 20150508, end: 20150904
  87. RAMIPRIL. [Concomitant]
     Active Substance: RAMIPRIL
     Indication: COUGH
     Dosage: 435 MILLIGRAM, UNK
     Route: 048
  88. RAMIPRIL. [Concomitant]
     Active Substance: RAMIPRIL
     Dosage: 5 MILLIGRAM DAILY;
     Route: 048
     Dates: start: 20160308, end: 20160602

REACTIONS (1)
  - Fatigue [Unknown]

NARRATIVE: CASE EVENT DATE: 20170830
